FAERS Safety Report 6785774-7 (Version None)
Quarter: 2010Q2

REPORT INFORMATION
  Report Type: 
  Country: None (occurrence: None)
  Receive Date: 20100622
  Receipt Date: 20100622
  Transmission Date: 20101027
  Serious: Yes (Other)
  Sender: FDA-Public Use
  Company Number: None

PATIENT
  Age: 43 Year
  Sex: Male
  Weight: 79.3795 kg

DRUGS (4)
  1. NEW DAY ALLERGY TABS NOT LISTED ON BOTTLE NAME (NEW DAY) ALLERGY TABLE [Suspect]
     Indication: EYE PRURITUS
     Dosage: 1 TABLET MORNING 1 TABLET EVENING
     Dates: start: 20100514, end: 20100516
  2. NEW DAY ALLERGY TABS NOT LISTED ON BOTTLE NAME (NEW DAY) ALLERGY TABLE [Suspect]
     Indication: LACRIMATION INCREASED
     Dosage: 1 TABLET MORNING 1 TABLET EVENING
     Dates: start: 20100514, end: 20100516
  3. NEW DAY ALLERGY TABS NOT LISTED ON BOTTLE NAME (NEW DAY) ALLERGY TABLE [Suspect]
     Indication: MULTIPLE ALLERGIES
     Dosage: 1 TABLET MORNING 1 TABLET EVENING
     Dates: start: 20100514, end: 20100516
  4. NEW DAY ALLERGY TABS NOT LISTED ON BOTTLE NAME (NEW DAY) ALLERGY TABLE [Suspect]
     Indication: SNEEZING
     Dosage: 1 TABLET MORNING 1 TABLET EVENING
     Dates: start: 20100514, end: 20100516

REACTIONS (3)
  - EAR HAEMORRHAGE [None]
  - EPISTAXIS [None]
  - NASAL DRYNESS [None]
